FAERS Safety Report 15678446 (Version 1)
Quarter: 2018Q4

REPORT INFORMATION
  Report Type: Spontaneous
  Country: JP (occurrence: JP)
  Receive Date: 20181201
  Receipt Date: 20181201
  Transmission Date: 20190205
  Serious: Yes (Other)
  Sender: FDA-Public Use
  Company Number: JP-UCBSA-2018053054

PATIENT
  Sex: Male
  Weight: 2.25 kg

DRUGS (9)
  1. LEVETIRACETAM. [Suspect]
     Active Substance: LEVETIRACETAM
     Indication: EPILEPSY
     Dosage: UNKNOWN DOSE
     Route: 048
  2. HEPARIN [Concomitant]
     Active Substance: HEPARIN SODIUM
     Dosage: 10,000 U TWICE DAILY
  3. HEPARIN [Concomitant]
     Active Substance: HEPARIN SODIUM
     Indication: ANTITHROMBIN III DECREASED
     Dosage: 5,000 U TWICE DAILY
  4. HEPARIN [Concomitant]
     Active Substance: HEPARIN SODIUM
     Dosage: 40,000 U/DAY
     Route: 042
  5. HEPARIN [Concomitant]
     Active Substance: HEPARIN SODIUM
     Dosage: 3000 U
  6. HEPARIN [Concomitant]
     Active Substance: HEPARIN SODIUM
     Dosage: 38,000 U/DAY
  7. HEPARIN [Concomitant]
     Active Substance: HEPARIN SODIUM
     Dosage: 3000 U
  8. HEPARIN [Concomitant]
     Active Substance: HEPARIN SODIUM
     Dosage: 3,000 U
  9. METOCLOPRAMIDE. [Concomitant]
     Active Substance: METOCLOPRAMIDE
     Indication: PRODUCT USED FOR UNKNOWN INDICATION
     Dosage: UNKNOWN DOSE

REACTIONS (3)
  - Low birth weight baby [Unknown]
  - Foetal exposure during pregnancy [Unknown]
  - Foetal growth restriction [Unknown]
